FAERS Safety Report 23740549 (Version 2)
Quarter: 2024Q2

REPORT INFORMATION
  Report Type: Spontaneous
  Country: RU (occurrence: RU)
  Receive Date: 20240415
  Receipt Date: 20240506
  Transmission Date: 20240716
  Serious: Yes (Other)
  Sender: FDA-Public Use
  Company Number: None

PATIENT
  Age: 33 Year
  Sex: Female
  Weight: 59 kg

DRUGS (1)
  1. FIASP [Suspect]
     Active Substance: INSULIN ASPART
     Indication: Type 1 diabetes mellitus
     Dosage: 30 IU (PUMP USED)
     Route: 058
     Dates: start: 20240219, end: 20240315

REACTIONS (7)
  - Ketoacidosis [Recovering/Resolving]
  - General physical health deterioration [Recovering/Resolving]
  - Dry mouth [Recovering/Resolving]
  - Pollakiuria [Recovering/Resolving]
  - Hyperglycaemia [Unknown]
  - Asthenia [Unknown]
  - Hypoglycaemia [Unknown]
